FAERS Safety Report 5080967-1 (Version None)
Quarter: 2006Q3

REPORT INFORMATION
  Report Type: 
  Country: None (occurrence: None)
  Receive Date: 20060810
  Receipt Date: 20060803
  Transmission Date: 20061208
  Serious: Yes (Hospitalization)
  Sender: FDA-Public Use
  Company Number: APP200600213

PATIENT
  Age: 68 Year
  Sex: Female
  Weight: 70.29 kg

DRUGS (7)
  1. VANCOMYCIN HYDROCHLORIDE [Suspect]
     Indication: OSTEOMYELITIS
     Dosage: SEE IMAGE
     Route: 042
     Dates: start: 20060209, end: 20060301
  2. VANCOMYCIN HYDROCHLORIDE [Suspect]
     Indication: OSTEOMYELITIS
     Dosage: SEE IMAGE
     Route: 042
     Dates: start: 20060302
  3. HALCION [Concomitant]
  4. CELEXA [Concomitant]
  5. TENORMIN [Concomitant]
  6. ENTROPHEN (ACETYLSALICYLIC ACID) [Concomitant]
  7. PREMARIN [Concomitant]

REACTIONS (10)
  - ALOPECIA [None]
  - ANGIONEUROTIC OEDEMA [None]
  - DRUG HYPERSENSITIVITY [None]
  - FACIAL PALSY [None]
  - FLUID RETENTION [None]
  - HYPOTENSION [None]
  - NAIL DISORDER [None]
  - PARAESTHESIA [None]
  - RENAL DISORDER [None]
  - RENAL IMPAIRMENT [None]
